FAERS Safety Report 5668725-8 (Version None)
Quarter: 2008Q1

REPORT INFORMATION
  Report Type: 
  Country: None (occurrence: None)
  Receive Date: 20080312
  Receipt Date: 20080312
  Transmission Date: 20080703
  Serious: Yes (Hospitalization)
  Sender: FDA-Public Use
  Company Number: None

PATIENT
  Age: 67 Year
  Sex: Female
  Weight: 82 kg

DRUGS (5)
  1. BEVACIZUMAB (GENENTECH) [Suspect]
     Indication: GLIOBLASTOMA MULTIFORME
     Dosage: 10 MG/KG, IV Q2WKS
     Route: 042
     Dates: start: 20071128
  2. BEVACIZUMAB (GENENTECH) [Suspect]
     Indication: GLIOBLASTOMA MULTIFORME
     Dosage: 10 MG/KG, IV Q2WKS
     Route: 042
     Dates: start: 20071226
  3. BEVACIZUMAB (GENENTECH) [Suspect]
     Indication: GLIOBLASTOMA MULTIFORME
     Dosage: 10 MG/KG, IV Q2WKS
     Route: 042
     Dates: start: 20080123
  4. TEMOZOLOMIDE [Suspect]
     Indication: GLIOBLASTOMA MULTIFORME
     Dosage: 50 MG/M2 PO X5D Q28D
     Route: 048
     Dates: start: 20071129, end: 20071203
  5. TEMOZOLOMIDE [Suspect]
     Indication: GLIOBLASTOMA MULTIFORME
     Dosage: 50 MG/M2 PO X5D Q28D
     Route: 048
     Dates: start: 20071226, end: 20071231

REACTIONS (5)
  - ABDOMINAL DISTENSION [None]
  - CHEST PAIN [None]
  - DEHYDRATION [None]
  - NAUSEA [None]
  - VOMITING [None]
